FAERS Safety Report 4561263-5 (Version None)
Quarter: 2005Q1

REPORT INFORMATION
  Report Type: 
  Country: None (occurrence: None)
  Receive Date: 20050121
  Receipt Date: 20050111
  Transmission Date: 20050727
  Serious: Yes (Other)
  Sender: FDA-Public Use
  Company Number: 211523

PATIENT
  Age: 10 Year
  Sex: Female
  Weight: 20.9 kg

DRUGS (4)
  1. NUTROPIN [Suspect]
     Indication: BODY HEIGHT BELOW NORMAL
     Dosage: 3.3 MG, 6/WKK, SUBCUTANEOUS
     Route: 058
     Dates: start: 20030616
  2. LEVOTHYROXINE (LEVOTHYROXINE SODIUM) [Concomitant]
  3. LUPRON DEPOT-4 [Concomitant]
  4. FEMARA [Concomitant]

REACTIONS (1)
  - DIABETES MELLITUS NON-INSULIN-DEPENDENT [None]
